FAERS Safety Report 18020093 (Version 1)
Quarter: 2020Q3

REPORT INFORMATION
  Report Type: Report from Study
  Country: IN (occurrence: IN)
  Receive Date: 20200714
  Receipt Date: 20200714
  Transmission Date: 20201103
  Serious: Yes (Other)
  Sender: FDA-Public Use
  Company Number: NVSC2020IN051283

PATIENT
  Age: 78 Year
  Sex: Male
  Weight: 75 kg

DRUGS (2)
  1. GALVUS MET [Suspect]
     Active Substance: METFORMIN HYDROCHLORIDE\VILDAGLIPTIN
     Indication: DIABETES MELLITUS
     Dosage: 50/1000 MG
     Route: 048
  2. GALVUS MET [Suspect]
     Active Substance: METFORMIN HYDROCHLORIDE\VILDAGLIPTIN
     Dosage: 50/500 MG
     Route: 048

REACTIONS (3)
  - Prostatic disorder [Unknown]
  - Drug ineffective [Unknown]
  - Weight decreased [Unknown]
